FAERS Safety Report 8974386 (Version 1)
Quarter: 2012Q4

REPORT INFORMATION
  Report Type: 
  Country: US (occurrence: US)
  Receive Date: 20121219
  Receipt Date: 20121219
  Transmission Date: 20130627
  Serious: Yes (Other)
  Sender: FDA-Public Use
  Company Number: US-BRISTOL-MYERS SQUIBB COMPANY-17196718

PATIENT
  Age: 76 Year
  Sex: Female
  Weight: 72.56 kg

DRUGS (13)
  1. COUMADIN TABS 5 MG [Suspect]
     Dates: start: 200612
  2. AVAPRO [Suspect]
     Dates: start: 200612
  3. MULTAQ [Concomitant]
  4. CETIRIZINE [Concomitant]
  5. CARVEDILOL [Concomitant]
  6. LIPITOR [Concomitant]
  7. COLLAGEN [Concomitant]
  8. OMEGA 3 FISH OIL [Concomitant]
  9. NEXIUM [Concomitant]
  10. LISINOPRIL [Concomitant]
  11. MAXIDEX [Concomitant]
     Dosage: 1df=37.5mg-25
  12. TRICOR [Concomitant]
  13. HYDROCODONE [Concomitant]
     Dosage: cut it in half

REACTIONS (2)
  - Eye disorder [Unknown]
  - Arthritis [Unknown]
